FAERS Safety Report 8185033-4 (Version None)
Quarter: 2012Q1

REPORT INFORMATION
  Report Type: 
  Country: None (occurrence: None)
  Receive Date: 20120305
  Receipt Date: 20120215
  Transmission Date: 20120608
  Serious: No
  Sender: FDA-Public Use
  Company Number: US-ROXANE LABORATORIES, INC.-2012-RO-00673RO

PATIENT
  Sex: Male

DRUGS (4)
  1. ZALEPLON [Suspect]
     Indication: SLEEP DISORDER
     Dosage: 10 MG
     Route: 048
     Dates: end: 20120215
  2. SEROQUEL [Concomitant]
  3. ACYCLOVIR [Concomitant]
  4. ZALEPLON [Suspect]
     Dosage: 20 MG
     Route: 048
     Dates: end: 20120215

REACTIONS (2)
  - INTENTIONAL DRUG MISUSE [None]
  - DRUG INEFFECTIVE [None]
